FAERS Safety Report 20033430 (Version 1)
Quarter: 2021Q4

REPORT INFORMATION
  Report Type: Spontaneous
  Country: NO (occurrence: NO)
  Receive Date: 20211104
  Receipt Date: 20211104
  Transmission Date: 20220303
  Serious: Yes (Life-Threatening, Other)
  Sender: FDA-Public Use
  Company Number: None

PATIENT
  Sex: Female
  Weight: 78 kg

DRUGS (1)
  1. ESCITALOPRAM OXALATE [Suspect]
     Active Substance: ESCITALOPRAM OXALATE
     Indication: Depression
     Dosage: 30 MG, OVERDOSE

REACTIONS (7)
  - Feeling abnormal [Unknown]
  - Electric shock sensation [Unknown]
  - Emotional poverty [Unknown]
  - Depression [Unknown]
  - Suicidal ideation [Unknown]
  - Anxiety [Unknown]
  - Off label use [Unknown]
